FAERS Safety Report 19468554 (Version 1)
Quarter: 2021Q2

REPORT INFORMATION
  Report Type: Spontaneous
  Country: US (occurrence: US)
  Receive Date: 20210628
  Receipt Date: 20210628
  Transmission Date: 20210717
  Serious: No
  Sender: FDA-Public Use
  Company Number: US-AMNEAL PHARMACEUTICALS-2021-AMRX-01500

PATIENT
  Age: 78 Year
  Sex: Female

DRUGS (1)
  1. SUCRALFATE. [Suspect]
     Active Substance: SUCRALFATE
     Indication: OESOPHAGEAL DISORDER
     Dosage: UNK
     Route: 048
     Dates: start: 20201207

REACTIONS (2)
  - Product packaging issue [Unknown]
  - Retching [Unknown]

NARRATIVE: CASE EVENT DATE: 202104
